FAERS Safety Report 9852552 (Version 1)
Quarter: 2013Q4

REPORT INFORMATION
  Report Type: Spontaneous
  Country: US (occurrence: None)
  Receive Date: 20131226
  Receipt Date: 20131226
  Transmission Date: 20140711
  Serious: No
  Sender: FDA-Public Use
  Company Number: PHEH2012US023872

PATIENT
  Sex: Female
  Weight: 52.6 kg

DRUGS (1)
  1. GILENYA (FINGOLIMOD) CAPSULE [Suspect]
     Indication: MULTIPLE SCLEROSIS
     Dosage: 1 DF, DAILY, ORAL
     Route: 048
     Dates: start: 20111130

REACTIONS (2)
  - Heart rate irregular [None]
  - Feeling abnormal [None]
